FAERS Safety Report 10390043 (Version 1)
Quarter: 2014Q3

REPORT INFORMATION
  Report Type: Spontaneous
  Country: US (occurrence: US)
  Receive Date: 20140818
  Receipt Date: 20140818
  Transmission Date: 20150326
  Serious: No
  Sender: FDA-Public Use
  Company Number: US-MALLINCKRODT-T201401753

PATIENT
  Age: 44 Year
  Sex: Male

DRUGS (1)
  1. CYSTO-CONRAY II [Suspect]
     Active Substance: IOTHALAMATE MEGLUMINE
     Indication: UROGRAM
     Dosage: 100 ML, SINGLE
     Route: 042
     Dates: start: 20140327, end: 20140327

REACTIONS (2)
  - Wrong drug administered [Unknown]
  - Incorrect route of drug administration [Unknown]

NARRATIVE: CASE EVENT DATE: 20140327
